FAERS Safety Report 7670999-9 (Version None)
Quarter: 2011Q3

REPORT INFORMATION
  Report Type: 
  Country: None (occurrence: None)
  Receive Date: 20110809
  Receipt Date: 20110728
  Transmission Date: 20111222
  Serious: Yes (Death, Hospitalization, Other)
  Sender: FDA-Public Use
  Company Number: US-BAYER-201010443NA

PATIENT
  Age: 43 Year
  Sex: Male
  Weight: 117 kg

DRUGS (45)
  1. LASIX [Concomitant]
     Dosage: 40 MG, QD
     Dates: start: 20050525
  2. ACTOS [Concomitant]
     Dosage: 30 MG, QD
     Dates: start: 20050525
  3. PLASMALYTE [GLUCOSE,POTASSIUM CHLORIDE] [Concomitant]
     Dosage: 2000 ML, UNK
     Route: 042
     Dates: start: 20050725, end: 20050725
  4. ACCUPRIL [Concomitant]
     Indication: HYPERTENSION
     Dosage: 20 MG, QD
     Route: 048
     Dates: start: 19960101, end: 20060101
  5. GLIPIZIDE [Concomitant]
     Dosage: 10 MG, QD
     Route: 048
     Dates: start: 20050525
  6. POTASSIUM CHLORIDE [Concomitant]
     Dosage: 20 MEQ
     Route: 048
  7. ALBUMIN (HUMAN) [Concomitant]
     Dosage: UNK
     Dates: start: 20050725, end: 20050725
  8. VANCOMYCIN [Concomitant]
     Dosage: 500MG
     Route: 042
     Dates: start: 20060331, end: 20060331
  9. NITROGLYCERIN [Concomitant]
     Dosage: 40 MG, UNK
     Route: 042
     Dates: start: 20050725, end: 20050725
  10. TRASYLOL [Suspect]
     Indication: AORTIC VALVE REPLACEMENT
     Dosage: 200 ML, UNK
     Route: 042
     Dates: start: 20050725, end: 20050725
  11. TRASYLOL [Suspect]
     Dosage: 2 MILLION UNITS
     Dates: start: 20060331, end: 20060331
  12. METFORMIN HCL [Concomitant]
     Dosage: 2000 MG, UNK
     Route: 048
     Dates: start: 20050525
  13. METOPROLOL RETARD [Concomitant]
     Dosage: 25 MG, UNK
     Dates: start: 20050525
  14. SPIRIVA [Concomitant]
     Dosage: 18 ?G, QD
  15. TRAMADOL HCL [Concomitant]
     Dosage: UNK
     Route: 048
  16. CARDIOPLEGIA [Concomitant]
  17. FENTANYL [Concomitant]
     Dosage: UNK
     Dates: start: 20050725
  18. DEPAKOTE [Concomitant]
     Indication: MULTIPLE ALLERGIES
     Dosage: 1000 MG, TID
  19. TRAZODONE HCL [Concomitant]
     Dosage: 50 MG, AT BED TIME
     Route: 048
  20. INSULIN [Concomitant]
     Route: 058
  21. PROTAMINE [Concomitant]
     Dosage: 300 MG, UNK
     Route: 042
     Dates: start: 20050725, end: 20050725
  22. ALBUTEROL SULFATE AUTOHALER [Concomitant]
     Dosage: 90 ?G, PRN, ONE SPRAY
     Dates: start: 20050525
  23. COUMADIN [Concomitant]
     Dosage: UNK
     Route: 048
  24. CARDIOPLEGIA [Concomitant]
     Dosage: UNK
     Route: 042
     Dates: start: 20060331, end: 20060331
  25. VERSED [Concomitant]
     Dosage: UNK
     Route: 042
     Dates: start: 20050725, end: 20050725
  26. ROCURONIUM BROMIDE [Concomitant]
     Dosage: 50 MG, UNK
     Route: 042
     Dates: start: 20050725, end: 20050725
  27. NIPRIDE [Concomitant]
     Dosage: UNK
     Route: 042
     Dates: start: 20050725, end: 20050725
  28. PLASMA [Concomitant]
     Dosage: UNK
     Route: 042
     Dates: start: 20060331, end: 20060331
  29. TRASYLOL [Suspect]
     Indication: MITRAL VALVE REPLACEMENT
     Dosage: UNK
     Dates: start: 20060331
  30. PROTAMINE [Concomitant]
     Dosage: 350MG
     Route: 042
     Dates: start: 20060331, end: 20060331
  31. MANNITOL [Concomitant]
     Dosage: UNK
     Route: 042
     Dates: start: 20050725, end: 20050725
  32. MANNITOL [Concomitant]
     Dosage: 25GM
     Route: 042
     Dates: start: 20060331, end: 20060331
  33. VANCOMYCIN [Concomitant]
     Dosage: 500 MG, UNK
     Dates: start: 20050725
  34. LIPITOR [Concomitant]
     Dosage: 10 MG, QD
     Route: 048
     Dates: start: 20050525
  35. CYMBALTA [Concomitant]
     Dosage: 60 MG, QD
     Route: 048
  36. LORAZEPAM [Concomitant]
     Dosage: 2 MG, PRN
  37. ALBUMIN (HUMAN) [Concomitant]
     Dosage: 25GM
     Route: 042
     Dates: start: 20060331, end: 20060331
  38. ACETYLSALICYLIC ACID SRT [Concomitant]
     Dosage: 325 MG, QD
     Route: 048
     Dates: start: 20050525
  39. LASIX [Concomitant]
     Dosage: 40MG
     Route: 042
     Dates: start: 20060331, end: 20060331
  40. VICODIN [Concomitant]
     Dosage: 5/500 MG, EVERY 6 HOURS PRN
     Route: 048
  41. HEPARIN [Concomitant]
     Dosage: 70000 U, UNK
     Route: 042
     Dates: start: 20050725, end: 20050725
  42. HEPARIN [Concomitant]
     Dosage: 89000 UNITS
     Route: 042
     Dates: start: 20060331, end: 20060331
  43. PLASMALYTE [GLUCOSE,POTASSIUM CHLORIDE] [Concomitant]
     Dosage: 2000ML
     Route: 042
     Dates: start: 20060331, end: 20060331
  44. SODIUM CHLORIDE [Concomitant]
     Dosage: 22 MEQ
     Route: 042
     Dates: start: 20050725, end: 20050725
  45. RED BLOOD CELLS [Concomitant]
     Dosage: UNK
     Route: 042
     Dates: start: 20060331, end: 20060331

REACTIONS (13)
  - DEATH [None]
  - RENAL FAILURE ACUTE [None]
  - RENAL FAILURE [None]
  - RENAL IMPAIRMENT [None]
  - UNEVALUABLE EVENT [None]
  - ANHEDONIA [None]
  - EMOTIONAL DISTRESS [None]
  - ANXIETY [None]
  - STRESS [None]
  - FEAR [None]
  - RENAL INJURY [None]
  - PAIN [None]
  - INJURY [None]
